FAERS Safety Report 6500593-4 (Version None)
Quarter: 2009Q4

REPORT INFORMATION
  Report Type: 
  Country: None (occurrence: None)
  Receive Date: 20091216
  Receipt Date: 20081124
  Transmission Date: 20100525
  Serious: No
  Sender: FDA-Public Use
  Company Number: A0758055A

PATIENT
  Age: 59 Year
  Sex: Female

DRUGS (1)
  1. COMMIT [Suspect]

REACTIONS (1)
  - NAUSEA [None]
